FAERS Safety Report 9140429 (Version 1)
Quarter: 2013Q1

REPORT INFORMATION
  Report Type: Spontaneous
  Country: US (occurrence: None)
  Receive Date: 20130227
  Receipt Date: 20130227
  Transmission Date: 20140127
  Serious: Yes (Death)
  Sender: FDA-Public Use
  Company Number: AUR-APL-2013-00635

PATIENT
  Age: 74 Year
  Sex: Female

DRUGS (3)
  1. CYCLOBENZAPRINE [Suspect]
     Indication: PRODUCT USED FOR UNKNOWN INDICATION
     Route: 048
  2. METOPROLOL (METOPROLOL) [Suspect]
  3. CITALOPRAM (CITALOPRAM) [Suspect]

REACTIONS (4)
  - Respiratory arrest [None]
  - Cardiac arrest [None]
  - Drug abuse [None]
  - Toxicity to various agents [None]
